FAERS Safety Report 9184139 (Version 1)
Quarter: 2013Q1

REPORT INFORMATION
  Report Type: Report from Study
  Country: US (occurrence: US)
  Receive Date: 20130322
  Receipt Date: 20130322
  Transmission Date: 20140127
  Serious: Yes (Hospitalization)
  Sender: FDA-Public Use
  Company Number: US-ACTELION-A-US2013-80672

PATIENT
  Age: 61 Year
  Sex: Male

DRUGS (2)
  1. VELETRI [Suspect]
     Indication: PULMONARY ARTERIAL HYPERTENSION
     Dosage: 43 NG/KG, PER MIN
     Route: 042
     Dates: start: 20110204
  2. COUMADIN [Concomitant]

REACTIONS (4)
  - Femur fracture [Unknown]
  - Device occlusion [Unknown]
  - Infection [Unknown]
  - Catheter site related reaction [Unknown]
